APPROVED DRUG PRODUCT: CLONAZEPAM
Active Ingredient: CLONAZEPAM
Strength: 1MG
Dosage Form/Route: TABLET;ORAL
Application: A077856 | Product #002 | TE Code: AB
Applicant: PRINSTON PHARMACEUTICAL INC
Approved: Jun 28, 2006 | RLD: No | RS: No | Type: RX